FAERS Safety Report 4594867-4 (Version None)
Quarter: 2005Q1

REPORT INFORMATION
  Report Type: 
  Country: None (occurrence: None)
  Receive Date: 20050223
  Receipt Date: 20050209
  Transmission Date: 20050727
  Serious: Yes (Other)
  Sender: FDA-Public Use
  Company Number: 2004077839

PATIENT
  Age: 80 Year
  Sex: Male
  Weight: 77.1115 kg

DRUGS (3)
  1. SUDAFED 12 HOUR [Suspect]
     Indication: RHINORRHOEA
     Dosage: 2 CAPLETS 10/2/04 + 1 CAPLET 10/03/2004, ORAL
     Route: 048
     Dates: start: 20041002, end: 20041003
  2. FISH OIL       (FISH OIL) [Concomitant]
  3. CENTRUM (MINERALS NOS, VITAMINS NOS) [Concomitant]

REACTIONS (9)
  - ANURIA [None]
  - BENIGN PROSTATIC HYPERPLASIA [None]
  - CYSTITIS [None]
  - DRUG INEFFECTIVE [None]
  - PAIN [None]
  - PROSTATE CANCER [None]
  - PROSTATE INFECTION [None]
  - PROSTATITIS [None]
  - URINARY RETENTION [None]
